FAERS Safety Report 9789974 (Version 1)
Quarter: 2013Q4

REPORT INFORMATION
  Report Type: Spontaneous
  Country: FR (occurrence: None)
  Receive Date: 20131227
  Receipt Date: 20131227
  Transmission Date: 20140711
  Serious: Yes (Other)
  Sender: FDA-Public Use
  Company Number: DSM-2013-00926

PATIENT
  Age: 79 Year
  Sex: Female

DRUGS (3)
  1. AXELER (OLMESARTAN MEDOXOMIL, AMLODIPINE BESILATE) (TABLET) (OLMESARTAN [Suspect]
     Indication: HYPERTENSION
     Route: 048
     Dates: start: 20130911, end: 201309
  2. LEVOTHYROX [Concomitant]
  3. MEDIATENSYL [Concomitant]

REACTIONS (1)
  - Face oedema [None]
